FAERS Safety Report 6619478-8 (Version None)
Quarter: 2010Q1

REPORT INFORMATION
  Report Type: 
  Country: None (occurrence: None)
  Receive Date: 20100309
  Receipt Date: 20100301
  Transmission Date: 20100710
  Serious: Yes (Death, Hospitalization)
  Sender: FDA-Public Use
  Company Number: DE-ELI_LILLY_AND_COMPANY-DE200912001967

PATIENT
  Sex: Male
  Weight: 69 kg

DRUGS (9)
  1. PEMETREXED [Suspect]
     Indication: NON-SMALL CELL LUNG CANCER
     Dosage: 500 MG/M2, ON D 1 EVERY 21 DAYS
     Route: 042
     Dates: start: 20090505, end: 20090710
  2. PEMETREXED [Suspect]
     Dosage: UNK, ON D1 EVERY 21 DAYS
     Route: 042
     Dates: start: 20090801, end: 20091207
  3. CISPLATIN [Suspect]
     Indication: NON-SMALL CELL LUNG CANCER
     Dosage: 75 MG/M2, ON D1 EVERY 21 DAYS
     Route: 042
     Dates: start: 20090505, end: 20090710
  4. FOLIC ACID [Concomitant]
     Indication: PROPHYLAXIS
     Dosage: 0.4 MG, DAILY (1/D)
     Dates: start: 20090430
  5. VIT B12 [Concomitant]
     Indication: PROPHYLAXIS
     Dosage: 1 MG, EVERY 9 WEEKS
     Route: 030
     Dates: start: 20091103, end: 20091103
  6. DEXAMETHASONE [Concomitant]
     Indication: PROPHYLAXIS
     Dates: start: 20091117, end: 20091119
  7. MOVICOL /01053601/ [Concomitant]
     Indication: CONSTIPATION
     Dosage: UNK, 2-3 TIMES DAILY
     Dates: start: 20090201
  8. ALNA [Concomitant]
     Indication: BENIGN PROSTATIC HYPERPLASIA
     Dates: start: 20090427
  9. LUTEIN [Concomitant]
     Indication: PROPHYLAXIS
     Dates: start: 20090728

REACTIONS (3)
  - ASCITES [None]
  - ILEUS [None]
  - MALIGNANT NEOPLASM PROGRESSION [None]
